FAERS Safety Report 8849924 (Version 1)
Quarter: 2012Q4

REPORT INFORMATION
  Report Type: 
  Country: US (occurrence: US)
  Receive Date: 20121019
  Receipt Date: 20121019
  Transmission Date: 20130627
  Serious: Yes (Other)
  Sender: FDA-Public Use
  Company Number: US-PERRIGO-12US008869

PATIENT
  Age: 4 Year
  Sex: Female
  Weight: 15.87 kg

DRUGS (4)
  1. IBUPROFEN CHILDRENS [Suspect]
     Indication: PYREXIA
     Dosage: 100 mg, single
     Route: 048
     Dates: start: 20120902, end: 20120902
  2. IBUPROFEN CHILDRENS [Suspect]
     Dosage: 230 mg, UNK
     Route: 048
     Dates: start: 20120902, end: 20120904
  3. ACETAMINOPHEN [Suspect]
     Indication: PYREXIA
     Dosage: 160 mg, single
     Route: 048
     Dates: start: 20120902, end: 20120902
  4. ACETAMINOPHEN [Suspect]
     Dosage: 150 mg, UNK
     Route: 048
     Dates: start: 20120902, end: 20120904

REACTIONS (5)
  - Febrile convulsion [Recovered/Resolved]
  - Drug ineffective [Unknown]
  - Grand mal convulsion [None]
  - Partial seizures [None]
  - Postictal state [None]
